FAERS Safety Report 13288532 (Version 2)
Quarter: 2017Q2

REPORT INFORMATION
  Report Type: Report from Study
  Country: None (occurrence: BR)
  Receive Date: 20170302
  Receipt Date: 20170523
  Transmission Date: 20170830
  Serious: Yes (Other)
  Sender: FDA-Public Use
  Company Number: BR-ABBVIE-17P-020-1894668-00

PATIENT
  Sex: Male
  Weight: 84 kg

DRUGS (11)
  1. CARVEDILOL. [Concomitant]
     Active Substance: CARVEDILOL
     Indication: CARDIAC DISORDER
     Dosage: ^1^ IN THE MORNING/ ^1^ AT NIGHT
     Route: 048
  2. MODURETIC 5-50 [Concomitant]
     Active Substance: AMILORIDE HYDROCHLORIDE\HYDROCHLOROTHIAZIDE
     Indication: DIURETIC THERAPY
     Dosage: FORM STRENGTH: 5/50 MG, WITH DIOVAN
     Route: 048
  3. LIPIDIL [Suspect]
     Active Substance: FENOFIBRATE
     Indication: BLOOD TRIGLYCERIDES ABNORMAL
  4. XARELTO [Concomitant]
     Active Substance: RIVAROXABAN
     Indication: ANEURYSM
     Dosage: ^1^ PER DAY
     Route: 048
  5. NPH INSULIN [Concomitant]
     Active Substance: INSULIN BEEF
     Indication: DIABETES MELLITUS
     Dosage: BEFORE BREAKFAST/ LUNCH/ DINNER
  6. DIOVAN [Concomitant]
     Active Substance: VALSARTAN
     Indication: BLOOD PRESSURE MANAGEMENT
     Dosage: FORM STRENGTH: 320/10 MG, 1 IN THE MORNING
     Route: 048
  7. JANUVIA [Concomitant]
     Active Substance: SITAGLIPTIN PHOSPHATE
     Indication: DIABETES MELLITUS
     Route: 048
  8. INSULIN [Concomitant]
     Active Substance: INSULIN NOS
     Indication: DIABETES MELLITUS
     Dosage: BEFORE BREAKFAST/ LUNCH/ DINNER
  9. LUTEIN W/VITAMINS NOS [Concomitant]
     Indication: MACULAR DEGENERATION
  10. LIPIDIL [Suspect]
     Active Substance: FENOFIBRATE
     Indication: BLOOD CHOLESTEROL ABNORMAL
     Dosage: DAILY DOSE: 160 MILLIGRAM, AT NIGHT (DINNER)
     Route: 048
     Dates: start: 2007
  11. CITTA [Concomitant]
     Active Substance: CITALOPRAM HYDROBROMIDE
     Indication: ANTIDEPRESSANT THERAPY
     Dosage: ^1^ PER DAY
     Route: 048

REACTIONS (10)
  - Chikungunya virus infection [Recovering/Resolving]
  - Hernia [Not Recovered/Not Resolved]
  - Rash papular [Recovered/Resolved]
  - Vomiting [Recovered/Resolved]
  - Incorrect dose administered [Unknown]
  - Headache [Not Recovered/Not Resolved]
  - Urinary incontinence [Not Recovered/Not Resolved]
  - Arthralgia [Not Recovered/Not Resolved]
  - Prostate cancer [Recovered/Resolved]
  - Pyrexia [Recovered/Resolved]

NARRATIVE: CASE EVENT DATE: 2017
